FAERS Safety Report 15699407 (Version 1)
Quarter: 2018Q4

REPORT INFORMATION
  Report Type: Spontaneous
  Country: US (occurrence: US)
  Receive Date: 20181207
  Receipt Date: 20181207
  Transmission Date: 20190205
  Serious: Yes (Hospitalization)
  Sender: FDA-Public Use
  Company Number: None

PATIENT
  Age: 50 Year
  Sex: Female
  Weight: 73.7 kg

DRUGS (5)
  1. OLARATUMAB [Suspect]
     Active Substance: OLARATUMAB
     Indication: SARCOMA UTERUS
     Route: 042
     Dates: start: 20181207
  2. OLARATUMAB [Suspect]
     Active Substance: OLARATUMAB
     Indication: METASTATIC UTERINE CANCER
     Dosage: ?          OTHER FREQUENCY:EVERY 21 DAYS;?
     Route: 042
     Dates: start: 20181207, end: 20181207
  3. DOXORUBICIN [Concomitant]
     Active Substance: DOXORUBICIN
     Dates: start: 20181207, end: 20181207
  4. SUBLINGUAL MORPHINE [Concomitant]
     Dates: start: 20181207
  5. OLARATUMAB [Suspect]
     Active Substance: OLARATUMAB
     Indication: SARCOMA UTERUS
     Dosage: ?          OTHER FREQUENCY:EVERY 21 DAYS;?
     Route: 042
     Dates: start: 20181207, end: 20181207

REACTIONS (1)
  - Oxygen saturation decreased [None]

NARRATIVE: CASE EVENT DATE: 20181207
